FAERS Safety Report 15859719 (Version 3)
Quarter: 2019Q2

REPORT INFORMATION
  Report Type: Spontaneous
  Country: US (occurrence: US)
  Receive Date: 20190123
  Receipt Date: 20190412
  Transmission Date: 20190711
  Serious: No
  Sender: FDA-Public Use
  Company Number: US-ARALEZ PHARMACEUTICALS R+D INC.-2019-ARA-000096

PATIENT
  Age: 64 Year
  Sex: Female
  Weight: 90.7 kg

DRUGS (4)
  1. LASIX [Concomitant]
     Active Substance: FUROSEMIDE
  2. ARMOUR THYROID [Concomitant]
     Active Substance: THYROID, PORCINE
  3. TOPROL XL [Suspect]
     Active Substance: METOPROLOL SUCCINATE
     Indication: HYPERTENSION
     Dosage: 50 MG, BID
     Dates: start: 20190108
  4. TOPROL XL [Suspect]
     Active Substance: METOPROLOL SUCCINATE
     Dosage: 25 MG, QD
     Dates: end: 201901

REACTIONS (8)
  - Hypertension [Unknown]
  - Vision blurred [Recovered/Resolved]
  - Inappropriate schedule of product administration [None]
  - Eye swelling [Unknown]
  - Erythema [Unknown]
  - Rash [Unknown]
  - Hypersensitivity [Recovered/Resolved]
  - Product quality issue [Unknown]

NARRATIVE: CASE EVENT DATE: 20190114
